FAERS Safety Report 9221812 (Version 4)
Quarter: 2013Q2

REPORT INFORMATION
  Report Type: Spontaneous
  Country: SE (occurrence: SE)
  Receive Date: 20130410
  Receipt Date: 20130605
  Transmission Date: 20140414
  Serious: Yes (Life-Threatening)
  Sender: FDA-Public Use
  Company Number: SE-JNJFOC-20130402232

PATIENT
  Age: 54 Year
  Sex: Female

DRUGS (3)
  1. REMICADE [Suspect]
     Indication: RHEUMATOID ARTHRITIS
     Dosage: TREATMENT PERIOD 7 YEARS
     Route: 042
     Dates: start: 20060314, end: 20130227
  2. METHOTREXATE [Suspect]
     Indication: RHEUMATOID ARTHRITIS
     Route: 048
     Dates: start: 20051214
  3. NSAID [Concomitant]
     Route: 065
     Dates: start: 20100622

REACTIONS (1)
  - Astrocytoma [Unknown]
